FAERS Safety Report 17802046 (Version 1)
Quarter: 2020Q2

REPORT INFORMATION
  Report Type: Spontaneous
  Country: US (occurrence: US)
  Receive Date: 20200518
  Receipt Date: 20200518
  Transmission Date: 20200714
  Serious: Yes (Hospitalization, Disabling, Other)
  Sender: FDA-Public Use
  Company Number: None

PATIENT
  Age: 64 Year
  Sex: Female
  Weight: 63 kg

DRUGS (13)
  1. PROTONIX [Concomitant]
     Active Substance: PANTOPRAZOLE SODIUM
  2. NUVIGIL [Concomitant]
     Active Substance: ARMODAFINIL
  3. CIPROFLOXACIN. [Suspect]
     Active Substance: CIPROFLOXACIN
     Indication: URINARY TRACT INFECTION
     Dosage: ?          QUANTITY:1 TABLET(S);?
     Route: 048
     Dates: start: 20191223, end: 20191223
  4. VITAMIN B-COMPLEX [Concomitant]
     Active Substance: DEXPANTHENOL\NIACINAMIDE\PYRIDOXINE HYDROCHLORIDE\RIBOFLAVIN 5^-PHOSPHATE SODIUM\THIAMINE HYDROCHLORIDE
  5. MAGNESIUM OXIDE. [Concomitant]
     Active Substance: MAGNESIUM OXIDE
  6. BETA CAROTENE. [Concomitant]
     Active Substance: BETA CAROTENE
  7. VITAMIN E [Concomitant]
     Active Substance: .ALPHA.-TOCOPHEROL
  8. DICLOFENAC [Concomitant]
     Active Substance: DICLOFENAC
  9. ONDANSETRON [Concomitant]
     Active Substance: ONDANSETRON
  10. ACYCLOVIR. [Concomitant]
     Active Substance: ACYCLOVIR
  11. VITAMIN D3 [Concomitant]
     Active Substance: CHOLECALCIFEROL
  12. SOYA LECITHIN [Concomitant]
     Active Substance: DIETARY SUPPLEMENT
  13. LACTAID [Concomitant]
     Active Substance: LACTASE

REACTIONS (9)
  - Status migrainosus [None]
  - Sinus disorder [None]
  - Epistaxis [None]
  - Nausea [None]
  - Vomiting [None]
  - Anaphylactic reaction [None]
  - Pain in extremity [None]
  - Palpitations [None]
  - Magnetic resonance imaging brain abnormal [None]

NARRATIVE: CASE EVENT DATE: 20191223
